FAERS Safety Report 5148342-9 (Version None)
Quarter: 2006Q4

REPORT INFORMATION
  Report Type: 
  Country: None (occurrence: None)
  Receive Date: 20061106
  Receipt Date: 20061026
  Transmission Date: 20070319
  Serious: Yes (Hospitalization, Other)
  Sender: FDA-Public Use
  Company Number: 2006132352

PATIENT
  Age: 50 Year
  Sex: Female

DRUGS (3)
  1. ZOLOFT [Suspect]
     Indication: DEPRESSION
     Dosage: 50 MG (1 IN 1 D)
  2. BROMAZEPAM [Concomitant]
  3. ACETAMINOPHEN [Concomitant]

REACTIONS (3)
  - ASTHENIA [None]
  - HYPONATRAEMIA [None]
  - SIGMOIDITIS [None]
